FAERS Safety Report 5064936-3 (Version None)
Quarter: 2006Q3

REPORT INFORMATION
  Report Type: 
  Country: None (occurrence: None)
  Receive Date: 20060726
  Receipt Date: 20060713
  Transmission Date: 20061208
  Serious: Yes (Other)
  Sender: FDA-Public Use
  Company Number: 2006089250

PATIENT
  Age: 32 Year
  Sex: Female
  Weight: 68 kg

DRUGS (2)
  1. RELPAX [Suspect]
     Indication: MIGRAINE
     Dosage: 40 MG AS NECESSARY, ORAL
     Route: 048
     Dates: start: 20050201
  2. VALERIAN EXTRACT (VALERIAN EXTRACT) [Concomitant]

REACTIONS (3)
  - LYMPHOMA [None]
  - SLEEP DISORDER [None]
  - STRESS [None]
